FAERS Safety Report 19486595 (Version 1)
Quarter: 2021Q3

REPORT INFORMATION
  Report Type: Spontaneous
  Country: US (occurrence: US)
  Receive Date: 20210702
  Receipt Date: 20210702
  Transmission Date: 20211014
  Serious: No
  Sender: FDA-Public Use
  Company Number: US-UPSHER-SMITH LABORATORIES, LLC-2020USL00542

PATIENT
  Sex: Male
  Weight: 167.8 kg

DRUGS (5)
  1. 20 UNSPECIFIED MEDICATIONS [Concomitant]
  2. TESTOSTERONE. [Suspect]
     Active Substance: TESTOSTERONE
     Indication: BLOOD TESTOSTERONE DECREASED
     Dosage: UNK LOWER DOSE
     Dates: start: 2020, end: 2020
  3. TESTOSTERONE. [Suspect]
     Active Substance: TESTOSTERONE
     Dosage: 100 MG, 1X/DAY (APPLIED TO SHOULDERS)
     Route: 061
     Dates: start: 2020
  4. TESTOSTERONE. [Suspect]
     Active Substance: TESTOSTERONE
     Dosage: 100 MG, 1X/DAY (APPLIED ON THE STOMACH)
     Route: 061
     Dates: start: 2020, end: 2020
  5. FENTANYL. [Concomitant]
     Active Substance: FENTANYL
     Route: 062

REACTIONS (5)
  - Feeling abnormal [Unknown]
  - Product administered at inappropriate site [Recovered/Resolved]
  - Product residue present [Not Recovered/Not Resolved]
  - Application site exfoliation [Recovered/Resolved]
  - Therapeutic product effect incomplete [Unknown]

NARRATIVE: CASE EVENT DATE: 2020
